FAERS Safety Report 13083071 (Version 2)
Quarter: 2017Q1

REPORT INFORMATION
  Report Type: Report from Study
  Country: PT (occurrence: PT)
  Receive Date: 20170104
  Receipt Date: 20170215
  Transmission Date: 20170428
  Serious: Yes (Death, Other)
  Sender: FDA-Public Use
  Company Number: PT-ROCHE-591236

PATIENT

DRUGS (4)
  1. CETUXIMAB. [Suspect]
     Active Substance: CETUXIMAB
     Indication: COLORECTAL CANCER METASTATIC
     Dosage: WEEK 1
     Route: 042
  2. OXALIPLATIN. [Suspect]
     Active Substance: OXALIPLATIN
     Indication: COLORECTAL CANCER METASTATIC
     Dosage: RECEIVED FOR 3 HRS ON DAY 1
     Route: 042
  3. CETUXIMAB. [Suspect]
     Active Substance: CETUXIMAB
     Dosage: WEEKLY OVER 8 CYCLES
     Route: 042
  4. CAPECITABINE. [Suspect]
     Active Substance: CAPECITABINE
     Indication: COLORECTAL CANCER METASTATIC
     Dosage: RECEIVED ON DAYS 1-14 EVERY 3 WEEK
     Route: 048

REACTIONS (7)
  - Infection [Fatal]
  - Blood potassium abnormal [Unknown]
  - Dermatitis acneiform [Unknown]
  - Gastrointestinal obstruction [Fatal]
  - Diarrhoea [Unknown]
  - Disease progression [Fatal]
  - Pancreatitis acute [Fatal]
